FAERS Safety Report 4849254-8 (Version None)
Quarter: 2005Q4

REPORT INFORMATION
  Report Type: 
  Country: None (occurrence: None)
  Receive Date: 20051209
  Receipt Date: 20051130
  Transmission Date: 20060501
  Serious: Yes (Hospitalization)
  Sender: FDA-Public Use
  Company Number: AT-JNJFOC-20051106035

PATIENT
  Age: 3 Year
  Sex: Female
  Weight: 14.2 kg

DRUGS (3)
  1. TYLENOL (CAPLET) [Suspect]
     Route: 048
  2. TYLENOL (CAPLET) [Suspect]
     Indication: COUGH
     Route: 048
  3. DEXTROMETHORPHAN HYDROBROMIDE [Concomitant]
     Indication: COUGH

REACTIONS (3)
  - ACCIDENTAL DRUG INTAKE BY CHILD [None]
  - ACCIDENTAL OVERDOSE [None]
  - HEPATOTOXICITY [None]
